FAERS Safety Report 5618957-X (Version None)
Quarter: 2008Q1

REPORT INFORMATION
  Report Type: 
  Country: None (occurrence: None)
  Receive Date: 20080207
  Receipt Date: 20080129
  Transmission Date: 20080703
  Serious: Yes (Hospitalization, Other)
  Sender: FDA-Public Use
  Company Number: US-PFIZER INC-2008009669

PATIENT
  Sex: Female

DRUGS (1)
  1. ACCURETIC [Suspect]
     Dosage: TEXT:10 MG/12.5 MG TWICE DAILY

REACTIONS (2)
  - DEHYDRATION [None]
  - URINARY TRACT INFECTION [None]
